FAERS Safety Report 9450064 (Version 3)
Quarter: 2014Q1

REPORT INFORMATION
  Report Type: Spontaneous
  Country: US (occurrence: US)
  Receive Date: 20130809
  Receipt Date: 20140212
  Transmission Date: 20141002
  Serious: Yes (Hospitalization)
  Sender: FDA-Public Use
  Company Number: US-BAYER-2013-096547

PATIENT
  Age: 31 Year
  Sex: Female
  Weight: 131.52 kg

DRUGS (1)
  1. MIRENA [Suspect]
     Indication: CONTRACEPTION
     Dosage: 20 MCG/24HR, CONT
     Route: 015
     Dates: start: 201110, end: 20130610

REACTIONS (9)
  - Uterine perforation [None]
  - Injury [None]
  - Abdominal pain [None]
  - Device dislocation [None]
  - Device misuse [None]
  - Medical device pain [None]
  - Ovarian cyst [None]
  - Device issue [None]
  - Emotional distress [None]
